FAERS Safety Report 5948227-1 (Version None)
Quarter: 2008Q4

REPORT INFORMATION
  Report Type: 
  Country: None (occurrence: None)
  Receive Date: 20081111
  Receipt Date: 20081028
  Transmission Date: 20090506
  Serious: Yes (Other)
  Sender: FDA-Public Use
  Company Number: US-ELI_LILLY_AND_COMPANY-US200810006714

PATIENT
  Age: 49 Year
  Sex: Female

DRUGS (8)
  1. GEMZAR [Suspect]
     Indication: OVARIAN CANCER
     Dosage: SINGLE AGENT, FOR ABOUT 1 YEAR
  2. FISH OIL [Concomitant]
     Dosage: 6000 MG, UNK
  3. COENZYME Q10 [Concomitant]
     Dosage: 850 MG, UNK
  4. VITAMINS, OTHER COMBINATIONS [Concomitant]
     Dosage: BLUE GREEN ALGAE
  5. SYMPHYTUM OFFICINALE [Concomitant]
     Dosage: 30 D/F, UNK
  6. POTASSIUM CHLORIDE [Concomitant]
     Dosage: 40 MEQ, DAILY (1/D)
  7. WELLBUTRIN [Concomitant]
     Dosage: 300 MG, DAILY (1/D)
  8. ANTIEMETICS AND ANTINAUSEANTS [Concomitant]
     Dosage: OTHER;PRIOR TO GEMZAR

REACTIONS (3)
  - SKIN REACTION [None]
  - UPPER LIMB FRACTURE [None]
  - URINE ABNORMALITY [None]
